FAERS Safety Report 6065040-8 (Version None)
Quarter: 2009Q1

REPORT INFORMATION
  Report Type: 
  Country: None (occurrence: None)
  Receive Date: 20090204
  Receipt Date: 20090130
  Transmission Date: 20090719
  Serious: Yes (Life-Threatening, Hospitalization)
  Sender: FDA-Public Use
  Company Number: FR-TEVA-184651ISR

PATIENT
  Sex: Male
  Weight: 80 kg

DRUGS (6)
  1. FOLINIC ACID [Suspect]
     Indication: GASTRIC CANCER
     Dates: start: 20060824
  2. FLUOROURACIL [Suspect]
     Indication: GASTRIC CANCER
     Dates: start: 20060824
  3. IRINOTECAN HYDROCHLORIDE [Suspect]
     Indication: GASTRIC CANCER
     Dates: start: 20060824
  4. ZOLPIDEM [Concomitant]
     Dates: start: 20061107
  5. MACROGOL [Concomitant]
     Dates: start: 20061121
  6. MORPHINE SULFATE [Concomitant]
     Dates: start: 20060817

REACTIONS (1)
  - CARDIOMYOPATHY [None]
